FAERS Safety Report 7439392-8 (Version None)
Quarter: 2011Q2

REPORT INFORMATION
  Report Type: 
  Country: None (occurrence: None)
  Receive Date: 20110427
  Receipt Date: 20110412
  Transmission Date: 20111010
  Serious: No
  Sender: FDA-Public Use
  Company Number: US-JNJFOC-20101003201

PATIENT
  Sex: Female
  Weight: 65.77 kg

DRUGS (1)
  1. DURAGESIC-50 [Suspect]
     Indication: MULTIPLE SCLEROSIS
     Route: 062

REACTIONS (2)
  - PRODUCT ADHESION ISSUE [None]
  - WRONG TECHNIQUE IN DRUG USAGE PROCESS [None]
